FAERS Safety Report 7655020-0 (Version None)
Quarter: 2011Q3

REPORT INFORMATION
  Report Type: 
  Country: None (occurrence: None)
  Receive Date: 20110728
  Receipt Date: 20110713
  Transmission Date: 20111222
  Serious: Yes (Life-Threatening, Hospitalization, Disabling)
  Sender: FDA-Public Use
  Company Number: TPG2011A01708

PATIENT
  Age: 77 Year
  Sex: Female

DRUGS (2)
  1. ACTOS [Suspect]
     Indication: TYPE 2 DIABETES MELLITUS
     Dosage: 30 MG (30 MG)
     Route: 048
     Dates: start: 20040901, end: 20080101
  2. ACTRAPID (INSULIN HUMAN) [Concomitant]

REACTIONS (3)
  - BLADDER CANCER [None]
  - METASTASES TO LIVER [None]
  - TRANSITIONAL CELL CARCINOMA [None]
